FAERS Safety Report 5867401-6 (Version None)
Quarter: 2008Q3

REPORT INFORMATION
  Report Type: 
  Country: None (occurrence: None)
  Receive Date: 20080902
  Receipt Date: 20080826
  Transmission Date: 20090109
  Serious: Yes (Hospitalization)
  Sender: FDA-Public Use
  Company Number: PHHO2006CH17110

PATIENT
  Sex: Female

DRUGS (3)
  1. DIOVAN T30230+ [Suspect]
     Indication: HYPERTENSION
     Dosage: 320 MG
     Route: 048
     Dates: start: 20060522, end: 20061013
  2. ESIDRIX [Suspect]
     Indication: HYPERTENSION
     Dosage: 12.5 MG, QD
     Route: 048
     Dates: start: 20061009, end: 20061013
  3. HYDROCHLOROTHIAZIDE [Suspect]
     Dosage: 12.5MG

REACTIONS (6)
  - ARTHRALGIA [None]
  - FACE INJURY [None]
  - FALL [None]
  - LIMB DISCOMFORT [None]
  - PAIN IN EXTREMITY [None]
  - SYNCOPE [None]
